FAERS Safety Report 16905944 (Version 1)
Quarter: 2019Q4

REPORT INFORMATION
  Report Type: Spontaneous
  Country: US (occurrence: US)
  Receive Date: 20191010
  Receipt Date: 20191010
  Transmission Date: 20200122
  Serious: Yes (Disabling)
  Sender: FDA-Public Use
  Company Number: US-TEVA-2019-US-1119668

PATIENT

DRUGS (3)
  1. DOCETAXEL. [Suspect]
     Active Substance: DOCETAXEL
     Route: 065
     Dates: start: 201407, end: 201407
  2. DOCETAXEL. [Suspect]
     Active Substance: DOCETAXEL
     Dosage: APPROXIMATELY JUL-2014
     Route: 065
     Dates: start: 201407, end: 201407
  3. TAXOTERE [Suspect]
     Active Substance: DOCETAXEL
     Route: 065
     Dates: start: 201407, end: 201407

REACTIONS (1)
  - Alopecia [Not Recovered/Not Resolved]
